FAERS Safety Report 5339999-8 (Version None)
Quarter: 2007Q2

REPORT INFORMATION
  Report Type: 
  Country: None (occurrence: None)
  Receive Date: 20070531
  Receipt Date: 20070522
  Transmission Date: 20071010
  Serious: Yes (Hospitalization)
  Sender: FDA-Public Use
  Company Number: US-ROCHE-493267

PATIENT
  Age: 62 Year
  Sex: Female
  Weight: 37.6 kg

DRUGS (2)
  1. XELODA [Suspect]
     Indication: COLON CANCER
     Dosage: 1650MG (NOS), MEDICATION WAS TAKEN TWICE DAILY
     Route: 048
     Dates: start: 20061204, end: 20061201
  2. XELODA [Suspect]
     Route: 048
     Dates: start: 20061229, end: 20070111

REACTIONS (2)
  - CLOSTRIDIUM DIFFICILE COLITIS [None]
  - DIARRHOEA [None]
